FAERS Safety Report 24649964 (Version 1)
Quarter: 2024Q4

REPORT INFORMATION
  Report Type: Spontaneous
  Country: CN (occurrence: CN)
  Receive Date: 20241122
  Receipt Date: 20241122
  Transmission Date: 20250115
  Serious: Yes (Hospitalization)
  Sender: ABBVIE
  Company Number: CN-ABBOTT-2024A-1391979

PATIENT
  Age: 36 Year
  Sex: Male
  Weight: 70 kg

DRUGS (1)
  1. FENOFIBRATE [Suspect]
     Active Substance: FENOFIBRATE
     Indication: Hyperlipidaemia
     Route: 048
     Dates: start: 20241010, end: 20241026

REACTIONS (1)
  - Hepatic function abnormal [Recovering/Resolving]

NARRATIVE: CASE EVENT DATE: 20241029
